FAERS Safety Report 5973524-3 (Version None)
Quarter: 2008Q4

REPORT INFORMATION
  Report Type: 
  Country: None (occurrence: None)
  Receive Date: 20081201
  Receipt Date: 20081118
  Transmission Date: 20090506
  Serious: Yes (Other)
  Sender: FDA-Public Use
  Company Number: CA-AVENTIS-200820956GDDC

PATIENT
  Age: 43 Year
  Sex: Male

DRUGS (6)
  1. KETEK [Suspect]
     Indication: LYME DISEASE
     Route: 048
     Dates: start: 20051001
  2. ANTIBIOTICS [Suspect]
     Indication: LYME DISEASE
     Dates: start: 20051001, end: 20060401
  3. CYCLOBENZAPRINE HCL [Suspect]
     Dates: start: 20050101, end: 20060401
  4. MELOXICAM [Suspect]
     Dates: start: 20050101, end: 20060401
  5. CODEINE CONTIN [Concomitant]
     Indication: PAIN
     Dates: start: 20050101
  6. HYDROXYCHLOROQUINE SULFATE [Concomitant]
     Indication: LYME DISEASE

REACTIONS (1)
  - HEPATIC ENZYME INCREASED [None]
